FAERS Safety Report 25629673 (Version 2)
Quarter: 2025Q4

REPORT INFORMATION
  Report Type: Spontaneous
  Country: BR (occurrence: BR)
  Receive Date: 20250731
  Receipt Date: 20251003
  Transmission Date: 20260117
  Serious: Yes (Life-Threatening, Other)
  Sender: NOVARTIS
  Company Number: BR-002147023-NVSC2022BR116886

PATIENT
  Age: 23 Month
  Sex: Female

DRUGS (2)
  1. ZOLGENSMA [Suspect]
     Active Substance: ONASEMNOGENE ABEPARVOVEC-XIOI
     Indication: Spinal muscular atrophy
     Dosage: UNK, ONCE/SINGLE
     Route: 042
     Dates: start: 20220505, end: 20220505
  2. Prednisolone phosphate [Concomitant]
     Indication: Product used for unknown indication
     Dosage: 30 MG
     Route: 065

REACTIONS (12)
  - Thrombocytopenia [Unknown]
  - Thrombotic microangiopathy [Recovered/Resolved]
  - Hypertension [Unknown]
  - Leukocytosis [Unknown]
  - Neutrophil toxic granulation present [Unknown]
  - Choluria [Unknown]
  - Schistocytosis [Unknown]
  - Poikilocytosis [Unknown]
  - Polychromasia [Unknown]
  - Infection [Unknown]
  - Gamma-glutamyltransferase increased [Unknown]
  - Transaminases increased [Unknown]
